FAERS Safety Report 12224658 (Version 1)
Quarter: 2016Q1

REPORT INFORMATION
  Report Type: Spontaneous
  Country: GB (occurrence: GB)
  Receive Date: 20160331
  Receipt Date: 20160331
  Transmission Date: 20160526
  Serious: Yes (Other)
  Sender: FDA-Public Use
  Company Number: GB-HETERO LABS LTD-1050015

PATIENT
  Age: 61 Year
  Sex: Female

DRUGS (6)
  1. AXCEL PROMETHAZINE [Concomitant]
     Active Substance: PROMETHAZINE HYDROCHLORIDE
  2. ASPIRIN. [Concomitant]
     Active Substance: ASPIRIN
  3. ADCAL D3 [Concomitant]
     Active Substance: CALCIUM CARBONATE\CHOLECALCIFEROL
  4. NIFEDIPINE. [Concomitant]
     Active Substance: NIFEDIPINE
  5. LOSARTAN. [Suspect]
     Active Substance: LOSARTAN
     Indication: DIABETIC NEPHROPATHY
     Route: 048
  6. SIMVASTATIN. [Concomitant]
     Active Substance: SIMVASTATIN

REACTIONS (2)
  - Hyperkalaemia [Unknown]
  - Renal impairment [Unknown]

NARRATIVE: CASE EVENT DATE: 20160307
